FAERS Safety Report 24625394 (Version 2)
Quarter: 2024Q4

REPORT INFORMATION
  Report Type: Spontaneous
  Country: BR (occurrence: BR)
  Receive Date: 20241115
  Receipt Date: 20241118
  Transmission Date: 20250114
  Serious: No
  Sender: NOVARTIS
  Company Number: BR-002147023-NVSC2024BR220141

PATIENT
  Sex: Female

DRUGS (1)
  1. BETOPTIC S [Suspect]
     Active Substance: BETAXOLOL HYDROCHLORIDE
     Indication: Glaucoma
     Dosage: 1 DRP, BID (0.25 %, 5 ML) (STOPPED 20 DAYS AGO)
     Route: 065

REACTIONS (6)
  - Eye irritation [Unknown]
  - Vision blurred [Unknown]
  - Visual field defect [Unknown]
  - Eye pain [Unknown]
  - Intraocular pressure increased [Unknown]
  - Product availability issue [Unknown]
